FAERS Safety Report 16435780 (Version 1)
Quarter: 2019Q2

REPORT INFORMATION
  Report Type: Spontaneous
  Country: FR (occurrence: FR)
  Receive Date: 20190614
  Receipt Date: 20190614
  Transmission Date: 20190711
  Serious: Yes (Hospitalization)
  Sender: FDA-Public Use
  Company Number: PHHY2019FR136003

PATIENT
  Age: 69 Year
  Sex: Male
  Weight: 55 kg

DRUGS (11)
  1. FOLINATE DE CALCIUM [Concomitant]
     Active Substance: LEUCOVORIN CALCIUM
     Indication: PROPHYLAXIS
     Dosage: 1 DF, BID
     Route: 048
     Dates: start: 20190407
  2. DEXCHLORPHENIRAMINE [Concomitant]
     Active Substance: DEXCHLORPHENIRAMINE
     Indication: PREMEDICATION
     Dosage: 5 MG, CYCLIC
     Route: 042
     Dates: start: 20190325
  3. CYTARABINE. [Concomitant]
     Active Substance: CYTARABINE
     Indication: WALDENSTROM^S MACROGLOBULINAEMIA
     Dosage: 40 MG, UNK
     Route: 037
  4. VALACICLOVIR [Suspect]
     Active Substance: VALACYCLOVIR HYDROCHLORIDE
     Indication: OPPORTUNISTIC INFECTION PROPHYLAXIS
     Dosage: 1000 MG, QD
     Route: 048
     Dates: start: 20190403, end: 20190408
  5. BACTRIM [Suspect]
     Active Substance: SULFAMETHOXAZOLE\TRIMETHOPRIM
     Indication: OPPORTUNISTIC INFECTION PROPHYLAXIS
     Dosage: 3 DF, QW
     Route: 048
     Dates: start: 20190403, end: 20190408
  6. PREDNISONE. [Concomitant]
     Active Substance: PREDNISONE
     Indication: PREMEDICATION
     Dosage: 70 MG, CYCLIC
     Route: 048
     Dates: start: 20190325
  7. METHYLPREDNISOLONE. [Concomitant]
     Active Substance: METHYLPREDNISOLONE
     Indication: WALDENSTROM^S MACROGLOBULINAEMIA
     Dosage: 20 MG, CYCLIC
     Route: 039
     Dates: start: 20190325
  8. METHOTREXATE. [Concomitant]
     Active Substance: METHOTREXATE
     Indication: WALDENSTROM^S MACROGLOBULINAEMIA
     Dosage: 15 MG, UNK
     Route: 037
  9. PARACETAMOL [Concomitant]
     Active Substance: ACETAMINOPHEN
     Indication: PRODUCT USED FOR UNKNOWN INDICATION
     Dosage: 1 G, CYCLIC
     Route: 042
     Dates: start: 20190325
  10. TINZAPARINE SODIQUE [Concomitant]
     Active Substance: TINZAPARIN SODIUM
     Indication: THROMBOSIS PROPHYLAXIS
     Dosage: 12000 IU, QD
     Route: 058
     Dates: end: 20190416
  11. RITUXIMAB. [Concomitant]
     Active Substance: RITUXIMAB
     Indication: WALDENSTROM^S MACROGLOBULINAEMIA
     Dosage: 650 MG, UNK
     Route: 041

REACTIONS (1)
  - Pancytopenia [Recovered/Resolved]

NARRATIVE: CASE EVENT DATE: 20190408
